FAERS Safety Report 7969576-1 (Version None)
Quarter: 2011Q4

REPORT INFORMATION
  Report Type: 
  Country: None (occurrence: None)
  Receive Date: 20111212
  Receipt Date: 20111209
  Transmission Date: 20120403
  Serious: Yes (Life-Threatening, Other)
  Sender: FDA-Public Use
  Company Number: US-PFIZER INC-2011273753

PATIENT
  Sex: Male
  Weight: 108.84 kg

DRUGS (5)
  1. KEPPRA [Concomitant]
     Indication: COMPLEX PARTIAL SEIZURES
     Dosage: 1500 MG, 2X/DAY
  2. DILANTIN [Suspect]
     Dosage: 500 MG, DAILY
     Route: 048
  3. ATIVAN [Suspect]
     Dosage: UNK
  4. DILANTIN [Suspect]
     Indication: CONVULSION
     Dosage: 100 MG, DAILY
     Route: 048
     Dates: start: 19830101
  5. VERSED [Suspect]
     Dosage: UNK

REACTIONS (4)
  - ANTICONVULSANT DRUG LEVEL DECREASED [None]
  - STATUS EPILEPTICUS [None]
  - WEIGHT INCREASED [None]
  - FATIGUE [None]
